FAERS Safety Report 9097249 (Version 2)
Quarter: 2013Q3

REPORT INFORMATION
  Report Type: Report from Study
  Country: BR (occurrence: BR)
  Receive Date: 20130212
  Receipt Date: 20130828
  Transmission Date: 20140515
  Serious: Yes (Hospitalization, Other)
  Sender: FDA-Public Use
  Company Number: PHHO2010BR17081

PATIENT
  Age: 82 Year
  Sex: Female
  Weight: 51 kg

DRUGS (7)
  1. ALISKIREN [Suspect]
     Indication: CARDIOVASCULAR DISORDER
     Route: 048
     Dates: start: 20090408, end: 20100906
  2. CHLORTALIDONE [Suspect]
     Dosage: 12.5 MG, QD
     Route: 048
     Dates: start: 200812, end: 20120625
  3. LOSARTAN [Suspect]
     Indication: HYPERTENSION
     Dosage: 100 MG, QD
     Route: 048
     Dates: start: 200812, end: 20120625
  4. AMLODIPINE [Suspect]
     Indication: HYPERTENSION
     Dosage: 5 MG, QD
     Route: 048
     Dates: start: 200812, end: 20120625
  5. SPIRONOLACTONE [Concomitant]
     Indication: HEPATIC CIRRHOSIS
     Dosage: 25 MG,
     Route: 048
     Dates: start: 20100929, end: 20120625
  6. NPH INSULIN [Concomitant]
     Indication: DIABETES MELLITUS
     Dosage: 20 IU, QD
     Dates: start: 20101215, end: 20120625
  7. SIMVASTATIN [Concomitant]
     Indication: HYPERLIPIDAEMIA
     Dosage: 20 MG, QD
     Route: 048
     Dates: start: 20111215

REACTIONS (8)
  - Ascites [Not Recovered/Not Resolved]
  - Abdominal distension [Not Recovered/Not Resolved]
  - Cardiac failure [Recovering/Resolving]
  - Concomitant disease progression [Recovering/Resolving]
  - Hepatic neoplasm [Recovering/Resolving]
  - Hepatic cirrhosis [Not Recovered/Not Resolved]
  - Renal disorder [Not Recovered/Not Resolved]
  - Anaemia [Unknown]
